FAERS Safety Report 20483885 (Version 1)
Quarter: 2022Q1

REPORT INFORMATION
  Report Type: Spontaneous
  Country: CA (occurrence: CA)
  Receive Date: 20220217
  Receipt Date: 20220217
  Transmission Date: 20220423
  Serious: Yes (Other)
  Sender: FDA-Public Use
  Company Number: None

PATIENT
  Age: 71 Year
  Sex: Female

DRUGS (11)
  1. METHOTREXATE [Suspect]
     Active Substance: METHOTREXATE
     Indication: Product used for unknown indication
  2. AMITRIPTYLINE [Concomitant]
     Active Substance: AMITRIPTYLINE
  3. CALCIUM [Concomitant]
     Active Substance: CALCIUM
  4. CLONAZEPAM [Concomitant]
     Active Substance: CLONAZEPAM
  5. INDAPAMIDE [Concomitant]
     Active Substance: INDAPAMIDE
  6. MAGNESIUM [Concomitant]
     Active Substance: MAGNESIUM
  7. METFORMIN [Concomitant]
     Active Substance: METFORMIN HYDROCHLORIDE
  8. PERINDOPRIL [Concomitant]
     Active Substance: PERINDOPRIL
  9. ROSUVASTATIN CALCIUM [Concomitant]
     Active Substance: ROSUVASTATIN CALCIUM
  10. VITAMIN D3 [Concomitant]
     Active Substance: CHOLECALCIFEROL
  11. TOFACITINIB [Concomitant]
     Active Substance: TOFACITINIB
     Indication: Rheumatoid arthritis
     Dosage: 1 EVERY 1 DAYS
     Route: 048

REACTIONS (2)
  - Hepatic cirrhosis [Unknown]
  - Liver injury [Unknown]
